FAERS Safety Report 13374870 (Version 1)
Quarter: 2017Q1

REPORT INFORMATION
  Report Type: Spontaneous
  Country: US (occurrence: US)
  Receive Date: 20170327
  Receipt Date: 20170327
  Transmission Date: 20170429
  Serious: Yes (Hospitalization)
  Sender: FDA-Public Use
  Company Number: US-VIFOR (INTERNATIONAL) INC.-VIT-2017-02926

PATIENT
  Age: 73 Year
  Sex: Female

DRUGS (28)
  1. LEVAQUIN [Concomitant]
     Active Substance: LEVOFLOXACIN
  2. TRADJENTA [Concomitant]
     Active Substance: LINAGLIPTIN
  3. TYLENOL [Concomitant]
     Active Substance: ACETAMINOPHEN
  4. ZOCOR [Concomitant]
     Active Substance: SIMVASTATIN
  5. BENZONATATE. [Concomitant]
     Active Substance: BENZONATATE
  6. COLACE [Concomitant]
     Active Substance: DOCUSATE SODIUM
  7. VELTASSA [Suspect]
     Active Substance: PATIROMER
     Indication: HYPERKALAEMIA
     Route: 048
     Dates: start: 20160831
  8. NEPHPLEX RX [Concomitant]
     Active Substance: ASCORBIC ACID\BIOTIN\COBALAMIN\FOLIC ACID\NIACINAMIDE\PANTOTHENIC ACID\PYRIDOXINE HYDROCHLORIDE\RIBOFLAVIN\THIAMINE\ZINC OXIDE
  9. MECLOZINE HYDROCHLORIDE [Concomitant]
     Active Substance: MECLOZINE DIHYDROCHLORIDE
  10. SENSIPAR [Concomitant]
     Active Substance: CINACALCET HYDROCHLORIDE
  11. ACETYLSALICYLIC ACID [Concomitant]
     Active Substance: ASPIRIN
  12. CELEBREX [Concomitant]
     Active Substance: CELECOXIB
  13. COLECALCIFEROL [Concomitant]
     Active Substance: CHOLECALCIFEROL
  14. MEGESTROL ACETATE. [Concomitant]
     Active Substance: MEGESTROL ACETATE
  15. REGLAN [Concomitant]
     Active Substance: METOCLOPRAMIDE HYDROCHLORIDE
  16. FLUOXETINE HYDROCHLORIDE. [Concomitant]
     Active Substance: FLUOXETINE HYDROCHLORIDE
  17. OMEPRAZOLE. [Concomitant]
     Active Substance: OMEPRAZOLE
  18. DOCUSATE SODIUM. [Concomitant]
     Active Substance: DOCUSATE SODIUM
  19. RANITIDINE HYDROCHLORIDE. [Concomitant]
     Active Substance: RANITIDINE HYDROCHLORIDE
  20. MUCINEX [Concomitant]
     Active Substance: GUAIFENESIN
  21. BENADRYL ALLERGY [Concomitant]
     Active Substance: DIPHENHYDRAMINE HYDROCHLORIDE
  22. ALLOPURINOL. [Concomitant]
     Active Substance: ALLOPURINOL
  23. COLCHICINE. [Concomitant]
     Active Substance: COLCHICINE
  24. RENVELA [Concomitant]
     Active Substance: SEVELAMER CARBONATE
  25. PERCOCET [Concomitant]
     Active Substance: ACETAMINOPHEN\OXYCODONE HYDROCHLORIDE
  26. ZITHROMAX [Concomitant]
     Active Substance: AZITHROMYCIN DIHYDRATE
  27. CLARITIN [Concomitant]
     Active Substance: LORATADINE
  28. LIDODERM [Concomitant]
     Active Substance: LIDOCAINE

REACTIONS (1)
  - Pneumonia [Unknown]

NARRATIVE: CASE EVENT DATE: 201703
